FAERS Safety Report 18684450 (Version 2)
Quarter: 2021Q1

REPORT INFORMATION
  Report Type: Spontaneous
  Country: US (occurrence: US)
  Receive Date: 20201230
  Receipt Date: 20210105
  Transmission Date: 20210419
  Serious: No
  Sender: FDA-Public Use
  Company Number: US-PFIZER INC-2018344115

PATIENT
  Age: 60 Year
  Sex: Male

DRUGS (6)
  1. LYRICA [Suspect]
     Active Substance: PREGABALIN
     Indication: DIABETIC NEUROPATHY
     Dosage: 150 MG, 2X/DAY (TAKE 1 CAPSULE BY MOUTH TWICE A DAY)
     Route: 048
     Dates: start: 20190920
  2. LYRICA [Suspect]
     Active Substance: PREGABALIN
     Indication: TYPE 2 DIABETES MELLITUS
     Dosage: 150 MG, 2X/DAY (TAKE 1 CAPSULE BY MOUTH TWICE A DAY)
     Route: 048
     Dates: start: 20181127
  3. LYRICA [Suspect]
     Active Substance: PREGABALIN
     Indication: STATUS MIGRAINOSUS
  4. LYRICA [Suspect]
     Active Substance: PREGABALIN
     Indication: NEURALGIA
  5. LYRICA [Suspect]
     Active Substance: PREGABALIN
     Indication: MIGRAINE WITHOUT AURA
  6. LYRICA [Suspect]
     Active Substance: PREGABALIN
     Indication: MIGRAINE

REACTIONS (1)
  - Drug ineffective for unapproved indication [Unknown]

NARRATIVE: CASE EVENT DATE: 20181127
